FAERS Safety Report 8814163 (Version 6)
Quarter: 2013Q3

REPORT INFORMATION
  Report Type: Spontaneous
  Country: US (occurrence: US)
  Receive Date: 20120928
  Receipt Date: 20130920
  Transmission Date: 20140515
  Serious: Yes (Other)
  Sender: FDA-Public Use
  Company Number: US-JNJFOC-20120908309

PATIENT
  Age: 42 Year
  Sex: Female
  Weight: 66.5 kg

DRUGS (28)
  1. REMICADE [Suspect]
     Indication: INFLAMMATORY BOWEL DISEASE
     Route: 042
     Dates: start: 20120309
  2. REMICADE [Suspect]
     Indication: INFLAMMATORY BOWEL DISEASE
     Route: 042
     Dates: start: 20111031
  3. REMICADE [Suspect]
     Indication: INFLAMMATORY BOWEL DISEASE
     Route: 042
     Dates: start: 20111114
  4. REMICADE [Suspect]
     Indication: INFLAMMATORY BOWEL DISEASE
     Route: 042
     Dates: start: 20120910
  5. REMICADE [Suspect]
     Indication: INFLAMMATORY BOWEL DISEASE
     Route: 042
  6. REMICADE [Suspect]
     Indication: INFLAMMATORY BOWEL DISEASE
     Route: 042
     Dates: start: 200107
  7. REMICADE [Suspect]
     Indication: COLITIS ULCERATIVE
     Route: 042
     Dates: start: 20111114
  8. REMICADE [Suspect]
     Indication: COLITIS ULCERATIVE
     Route: 042
     Dates: start: 20120309
  9. REMICADE [Suspect]
     Indication: COLITIS ULCERATIVE
     Route: 042
     Dates: start: 20120910
  10. REMICADE [Suspect]
     Indication: COLITIS ULCERATIVE
     Route: 042
  11. REMICADE [Suspect]
     Indication: COLITIS ULCERATIVE
     Route: 042
     Dates: start: 20111031
  12. REMICADE [Suspect]
     Indication: COLITIS ULCERATIVE
     Route: 042
     Dates: start: 200107
  13. NORVASC [Suspect]
     Indication: HYPERTENSION
     Route: 065
  14. ALCOHOL [Suspect]
     Indication: PRODUCT USED FOR UNKNOWN INDICATION
     Dosage: 12-15 UNITS
     Route: 065
  15. TRIAMCINOLONE [Concomitant]
     Route: 061
  16. LISINOPRIL [Concomitant]
     Indication: HYPERTENSION
     Route: 048
     Dates: start: 20101015
  17. ASACOL HD [Concomitant]
     Route: 048
     Dates: start: 20101228
  18. NEXIUM [Concomitant]
     Route: 048
     Dates: start: 20100330
  19. LEXAPRO [Concomitant]
     Route: 048
     Dates: start: 20090608
  20. ZYRTEC [Concomitant]
     Indication: HYPERSENSITIVITY
     Route: 048
  21. NASONEX [Concomitant]
     Route: 045
     Dates: start: 20101029
  22. NORITATE [Concomitant]
     Route: 065
     Dates: start: 20090911
  23. MULTIPLE VITAMINS [Concomitant]
     Route: 048
     Dates: start: 20090317
  24. CALTRATE 600 WITH VITAMIN D [Concomitant]
     Dosage: 600-400
     Route: 048
     Dates: start: 20090608
  25. ALL OTHER THERAPEUTIC PRODUCTS [Concomitant]
     Dosage: 600-400
     Route: 048
     Dates: start: 20120424
  26. FISH OIL [Concomitant]
     Dosage: 600-400
     Route: 048
     Dates: start: 20120424
  27. KLONOPIN [Concomitant]
     Dosage: 600-400
     Route: 048
     Dates: start: 20120824
  28. KLOR-CON [Concomitant]
     Route: 065
     Dates: start: 20130430

REACTIONS (7)
  - Biliary cirrhosis primary [Recovered/Resolved]
  - Hepatitis viral [Unknown]
  - Gallbladder injury [Unknown]
  - Blood immunoglobulin G increased [Unknown]
  - Hyperlipidaemia [Unknown]
  - Blood potassium decreased [Unknown]
  - Oedema [Recovered/Resolved]
